FAERS Safety Report 5008068-9 (Version None)
Quarter: 2006Q2

REPORT INFORMATION
  Report Type: 
  Country: None (occurrence: None)
  Receive Date: 20060404
  Receipt Date: 20050718
  Transmission Date: 20061013
  Serious: Yes (Other)
  Sender: FDA-Public Use
  Company Number: 2005088279

PATIENT
  Age: 7 Year
  Sex: Female

DRUGS (4)
  1. GEODON [Suspect]
     Indication: AGITATION
     Dosage: 160 MG
  2. GEODON [Suspect]
     Indication: AUTISM
     Dosage: 160 MG
  3. KLONOPIN [Suspect]
     Indication: AUTISM
     Dates: start: 20031001
  4. TENEX [Suspect]

REACTIONS (1)
  - ELECTROCARDIOGRAM QT PROLONGED [None]
